FAERS Safety Report 16742268 (Version 2)
Quarter: 2019Q4

REPORT INFORMATION
  Report Type: Report from Study
  Country: US (occurrence: US)
  Receive Date: 20190826
  Receipt Date: 20191008
  Transmission Date: 20200122
  Serious: Yes (Hospitalization, Other)
  Sender: FDA-Public Use
  Company Number: US-GILEAD-2019-0425182

PATIENT
  Age: 16 Year
  Sex: Female

DRUGS (7)
  1. ORKAMBI [Concomitant]
     Active Substance: IVACAFTOR\LUMACAFTOR
     Dates: start: 20170531
  2. TOBI [Concomitant]
     Active Substance: TOBRAMYCIN
  3. URSODIOL. [Concomitant]
     Active Substance: URSODIOL
  4. SODIUM CHLORIDE. [Concomitant]
     Active Substance: SODIUM CHLORIDE
  5. AZTREONAM LYSINE [Suspect]
     Active Substance: AZTREONAM LYSINE
     Indication: CYSTIC FIBROSIS
     Dosage: RES75 MG, TID
     Route: 055
     Dates: start: 20161110
  6. PULMOZYME [Concomitant]
     Active Substance: DORNASE ALFA
  7. SMZ-TMP [Concomitant]
     Active Substance: SULFAMETHOXAZOLE\TRIMETHOPRIM

REACTIONS (2)
  - Cough [Not Recovered/Not Resolved]
  - Cystic fibrosis [Unknown]
